FAERS Safety Report 13724659 (Version 1)
Quarter: 2017Q3

REPORT INFORMATION
  Report Type: Report from Study
  Country: KR (occurrence: KR)
  Receive Date: 20170706
  Receipt Date: 20170706
  Transmission Date: 20171127
  Serious: Yes (Hospitalization)
  Sender: FDA-Public Use
  Company Number: KR-B.I. PHARMACEUTICALS,INC./RIDGEFIELD-2017-BI-034508

PATIENT
  Age: 66 Year
  Sex: Female
  Weight: 74 kg

DRUGS (17)
  1. SAROPRAM [Suspect]
     Active Substance: ESCITALOPRAM OXALATE
     Indication: DEPRESSION
     Route: 065
  2. HINECOL [Suspect]
     Active Substance: BETHANECHOL CHLORIDE
     Indication: BENIGN PROSTATIC HYPERPLASIA
     Route: 065
  3. IRCODON [Suspect]
     Active Substance: OXYCODONE HYDROCHLORIDE
     Indication: MUSCULOSKELETAL PAIN
     Route: 065
     Dates: start: 20170329
  4. HARNAL [Suspect]
     Active Substance: TAMSULOSIN HYDROCHLORIDE
     Indication: BENIGN PROSTATIC HYPERPLASIA
     Route: 065
     Dates: start: 20170330
  5. TRISONEKIT [Suspect]
     Active Substance: CEFTRIAXONE SODIUM
     Indication: PYREXIA
     Route: 065
     Dates: start: 20170323
  6. BROMAZEPAM [Suspect]
     Active Substance: BROMAZEPAM
     Indication: DEPRESSION
     Route: 065
  7. GILOTRIF [Suspect]
     Active Substance: AFATINIB
     Indication: NON-SMALL CELL LUNG CANCER
     Route: 048
     Dates: start: 20170330, end: 20170422
  8. TARGIN [Suspect]
     Active Substance: NALOXONE HYDROCHLORIDE\OXYCODONE HYDROCHLORIDE
     Indication: MUSCULOSKELETAL PAIN
     Dosage: STRENGTH: 5MG/NALOXONE 2.5MG, UNIT DOSE AND DAILY DOSE:10/5 MG
     Route: 065
     Dates: start: 20170324, end: 20170327
  9. TARGIN [Suspect]
     Active Substance: NALOXONE HYDROCHLORIDE\OXYCODONE HYDROCHLORIDE
     Dosage: STRENGTH: 10MG/NALOXONE 5MG,UNIT DOSE AND DAILY DOSE: 20/10MG
     Route: 065
     Dates: start: 20170328
  10. ZOLMIN [Suspect]
     Active Substance: TRIAZOLAM
     Indication: DEPRESSION
     Route: 065
  11. TRISONEKIT [Suspect]
     Active Substance: CEFTRIAXONE SODIUM
     Indication: BLOOD CULTURE
  12. FOLIC ACID. [Suspect]
     Active Substance: FOLIC ACID
     Indication: ANAEMIA PROPHYLAXIS
     Route: 065
     Dates: start: 20170321
  13. TRAZODONE HYDROCHLORIDE. [Suspect]
     Active Substance: TRAZODONE HYDROCHLORIDE
     Indication: DEPRESSION
     Route: 065
  14. MATRIFEN [Suspect]
     Active Substance: FENTANYL
     Indication: MUSCULOSKELETAL PAIN
     Route: 065
     Dates: start: 20170325
  15. RESPILENE (ZIPEPROL DIHYDROCHLORIDE) [Suspect]
     Active Substance: ZIPEPROL HYDROCHLORIDE
     Indication: COUGH
     Dosage: STRENGTH: 5MG/ML, UNIT DOSE AND DAILY DOSE: 15MG/ML
     Route: 065
     Dates: start: 20170327
  16. LITHIUM CARBONATE. [Suspect]
     Active Substance: LITHIUM CARBONATE
     Indication: DEPRESSION
     Route: 065
  17. HILASE [Suspect]
     Active Substance: DIASTASE\LIPASE\URSODIOL
     Indication: DRUG THERAPY
     Route: 065

REACTIONS (1)
  - Clostridium difficile infection [Recovered/Resolved]

NARRATIVE: CASE EVENT DATE: 20170421
